FAERS Safety Report 10080049 (Version 4)
Quarter: 2015Q1

REPORT INFORMATION
  Report Type: Spontaneous
  Country: SE (occurrence: SE)
  Receive Date: 20140415
  Receipt Date: 20150309
  Transmission Date: 20150720
  Serious: Yes (Hospitalization, Other)
  Sender: FDA-Public Use
  Company Number: SE-PFIZER INC-2014102813

PATIENT
  Age: 68 Year
  Sex: Male

DRUGS (5)
  1. XANOR [Suspect]
     Active Substance: ALPRAZOLAM
     Indication: PANIC ATTACK
     Dosage: UNK
     Dates: start: 2014
  2. XANOR DEPOT [Suspect]
     Active Substance: ALPRAZOLAM
     Indication: PANIC ATTACK
     Dosage: 1 MG, THREE TIMES A DAY
     Dates: start: 2006
  3. XANOR DEPOT [Suspect]
     Active Substance: ALPRAZOLAM
     Dosage: 1 MG, FOUR TIMES DAILY (PLUS 1 TABLET AS NEEDED)
     Dates: end: 201401
  4. CYMBALTA [Concomitant]
     Active Substance: DULOXETINE HYDROCHLORIDE
     Dosage: UNK
  5. TROMBYL [Concomitant]
     Active Substance: ASPIRIN
     Dosage: UNK

REACTIONS (10)
  - Hyperventilation [Unknown]
  - Drug ineffective [Recovering/Resolving]
  - Heart rate increased [Unknown]
  - Myocardial infarction [Unknown]
  - Coronary artery disease [Unknown]
  - Dyspnoea [Unknown]
  - Inner ear disorder [Not Recovered/Not Resolved]
  - Hypertension [Unknown]
  - Anxiety [Unknown]
  - Personality disorder [Unknown]

NARRATIVE: CASE EVENT DATE: 201304
